FAERS Safety Report 15397373 (Version 3)
Quarter: 2019Q2

REPORT INFORMATION
  Report Type: Report from Study
  Country: SE (occurrence: SE)
  Receive Date: 20180918
  Receipt Date: 20190611
  Transmission Date: 20190711
  Serious: Yes (Death, Hospitalization)
  Sender: FDA-Public Use
  Company Number: SE-PFIZER INC-2018370707

PATIENT
  Age: 42 Year
  Sex: Female

DRUGS (3)
  1. EPIRUBICIN HCL [Suspect]
     Active Substance: EPIRUBICIN HYDROCHLORIDE
     Indication: BREAST CANCER
     Dosage: 75 MG/M2, EVERY 3 WEEKS (FIRST COURSE OF THE NEOADJUVANT CHEMOTHERAPY, SIX COURSES)
     Route: 042
  2. DOCETAXEL. [Suspect]
     Active Substance: DOCETAXEL
     Indication: BREAST CANCER
     Dosage: 75 MG/M2, EVERY 3 WEEKS (FIRST COURSE OF THE NEOADJUVANT CHEMOTHERAPY, SIX COURSES)
     Route: 042
  3. PEGFILGRASTIM [Concomitant]
     Active Substance: PEGFILGRASTIM
     Indication: COLONY STIMULATING FACTOR THERAPY
     Dosage: UNK

REACTIONS (6)
  - Diarrhoea [Unknown]
  - Febrile neutropenia [Unknown]
  - Fatigue [Unknown]
  - Colitis [Fatal]
  - Nausea [Unknown]
  - Abdominal pain [Unknown]
